FAERS Safety Report 19170454 (Version 2)
Quarter: 2021Q2

REPORT INFORMATION
  Report Type: Spontaneous
  Country: US (occurrence: US)
  Receive Date: 20210422
  Receipt Date: 20210514
  Transmission Date: 20210717
  Serious: No
  Sender: FDA-Public Use
  Company Number: US-PFIZER INC-2021300072

PATIENT
  Age: 65 Year
  Sex: Male

DRUGS (1)
  1. SUTENT [Suspect]
     Active Substance: SUNITINIB MALATE
     Indication: NEUROENDOCRINE TUMOUR
     Dosage: 37.5 MG, 1X/DAY

REACTIONS (16)
  - Neoplasm progression [Unknown]
  - Dry mouth [Recovering/Resolving]
  - Gingival pain [Recovering/Resolving]
  - Dyskinesia [Recovering/Resolving]
  - Back pain [Unknown]
  - Oral mucosal eruption [Recovering/Resolving]
  - Glossitis [Recovering/Resolving]
  - Stomatitis [Recovering/Resolving]
  - Glossodynia [Recovering/Resolving]
  - Tongue eruption [Recovering/Resolving]
  - Pain [Unknown]
  - Malaise [Unknown]
  - Dizziness [Unknown]
  - Hypoaesthesia oral [Recovering/Resolving]
  - Drug hypersensitivity [Unknown]
  - Lacrimation increased [Unknown]
